FAERS Safety Report 4614275-7 (Version None)
Quarter: 2005Q1

REPORT INFORMATION
  Report Type: 
  Country: None (occurrence: None)
  Receive Date: 20050315
  Receipt Date: 20050225
  Transmission Date: 20050727
  Serious: Yes (Hospitalization)
  Sender: FDA-Public Use
  Company Number: USA050291815

PATIENT
  Sex: Female

DRUGS (2)
  1. CYMBALTA [Suspect]
  2. GEODON [Concomitant]

REACTIONS (1)
  - TARDIVE DYSKINESIA [None]
